FAERS Safety Report 24930477 (Version 1)
Quarter: 2025Q1

REPORT INFORMATION
  Report Type: Spontaneous
  Country: US (occurrence: US)
  Receive Date: 20250205
  Receipt Date: 20250205
  Transmission Date: 20250409
  Serious: Yes (Other)
  Sender: RICOLA USA INC.
  Company Number: US-Ricola USA Inc.-2170585

PATIENT
  Age: 37 Year
  Sex: Female

DRUGS (1)
  1. CHERRY THROAT DROPS (MENTHOL) [Suspect]
     Active Substance: MENTHOL
     Indication: Throat irritation
     Dates: start: 20240913, end: 20240913

REACTIONS (1)
  - Hypersensitivity [Recovered/Resolved]

NARRATIVE: CASE EVENT DATE: 20240913
